FAERS Safety Report 11263702 (Version 1)
Quarter: 2015Q3

REPORT INFORMATION
  Report Type: Spontaneous
  Country: US (occurrence: None)
  Receive Date: 20150709
  Receipt Date: 20150709
  Transmission Date: 20151125
  Serious: Yes (Hospitalization)
  Sender: FDA-Public Use
  Company Number: COM-003361

PATIENT
  Age: 75 Year
  Sex: Female
  Weight: 79.38 kg

DRUGS (1)
  1. ISO-BLU ALCOHOL [Suspect]
     Active Substance: ISOPROPYL ALCOHOL
     Indication: PAIN IN EXTREMITY
     Dosage: A SMALL AMOUNT, ONCE?TOPICALLY
     Route: 061
     Dates: start: 20150619

REACTIONS (4)
  - Dizziness [None]
  - Chest pain [None]
  - Nausea [None]
  - Blood pressure increased [None]

NARRATIVE: CASE EVENT DATE: 20150619
